FAERS Safety Report 6025398-2 (Version None)
Quarter: 2008Q4

REPORT INFORMATION
  Report Type: 
  Country: None (occurrence: None)
  Receive Date: 20081229
  Receipt Date: 20081229
  Transmission Date: 20090506
  Serious: No
  Sender: FDA-Public Use
  Company Number: None

PATIENT
  Age: 15 Year
  Sex: Female
  Weight: 63.5036 kg

DRUGS (1)
  1. CIPROFLOXACIN [Suspect]
     Indication: PSEUDOMONAS INFECTION
     Dosage: 1 TABLET EVERY 12 HOURS PO
     Route: 048
     Dates: start: 20081020, end: 20081025

REACTIONS (2)
  - TENDONITIS [None]
  - TREATMENT FAILURE [None]
